FAERS Safety Report 13816021 (Version 1)
Quarter: 2017Q3

REPORT INFORMATION
  Report Type: Spontaneous
  Country: US (occurrence: US)
  Receive Date: 20170731
  Receipt Date: 20170731
  Transmission Date: 20171127
  Serious: Yes (Other)
  Sender: FDA-Public Use
  Company Number: US-SA-2017SA075992

PATIENT

DRUGS (1)
  1. AMBIEN [Suspect]
     Active Substance: ZOLPIDEM TARTRATE
     Indication: SLEEP DISORDER
     Route: 065

REACTIONS (6)
  - Extra dose administered [Unknown]
  - Overdose [Unknown]
  - Road traffic accident [Unknown]
  - Anterograde amnesia [Unknown]
  - Somnambulism [Unknown]
  - Limb injury [Unknown]
